FAERS Safety Report 5210457-4 (Version None)
Quarter: 2006Q4

REPORT INFORMATION
  Report Type: 
  Country: None (occurrence: None)
  Receive Date: 20061106
  Receipt Date: 20060804
  Transmission Date: 20070319
  Serious: Yes (Hospitalization)
  Sender: FDA-Public Use
  Company Number: ZYD-06-AE-050

PATIENT
  Age: 56 Year
  Sex: Female

DRUGS (2)
  1. RIBAVIRIN [Suspect]
     Dosage: ORAL
     Route: 048
     Dates: start: 20060101
  2. PEG-INTRON [Suspect]
     Dosage: IV
     Route: 042
     Dates: start: 20060101

REACTIONS (7)
  - ABNORMAL BEHAVIOUR [None]
  - AMNESIA [None]
  - ENCEPHALITIS [None]
  - FEELING ABNORMAL [None]
  - HYPERSENSITIVITY [None]
  - RESPIRATORY DISTRESS [None]
  - REVERSIBLE POSTERIOR LEUKOENCEPHALOPATHY SYNDROME [None]
